FAERS Safety Report 5765455-9 (Version None)
Quarter: 2008Q2

REPORT INFORMATION
  Report Type: 
  Country: None (occurrence: None)
  Receive Date: 20080611
  Receipt Date: 20080604
  Transmission Date: 20081010
  Serious: Yes (Other)
  Sender: FDA-Public Use
  Company Number: A0731153A

PATIENT
  Age: 68 Year
  Sex: Female

DRUGS (4)
  1. LAMICTAL [Suspect]
     Indication: OESOPHAGEAL DISORDER
     Dosage: 100MG THREE TIMES PER DAY
     Route: 048
     Dates: start: 20070401
  2. AMANTADINE HCL [Concomitant]
  3. CLONAZEPAM [Concomitant]
  4. BLOOD PRESSURE MEDICATION [Concomitant]

REACTIONS (8)
  - AMNESIA [None]
  - APATHY [None]
  - DEMENTIA [None]
  - DISTURBANCE IN ATTENTION [None]
  - FATIGUE [None]
  - OFF LABEL USE [None]
  - PETIT MAL EPILEPSY [None]
  - THERAPEUTIC RESPONSE UNEXPECTED [None]
